FAERS Safety Report 9493485 (Version 2)
Quarter: 2013Q3

REPORT INFORMATION
  Report Type: Spontaneous
  Country: AU (occurrence: AU)
  Receive Date: 20130902
  Receipt Date: 20130902
  Transmission Date: 20140515
  Serious: Yes (Hospitalization)
  Sender: FDA-Public Use
  Company Number: AU-PFIZER INC-2013221343

PATIENT
  Age: 71 Year
  Sex: Male

DRUGS (11)
  1. SUTENT [Suspect]
     Indication: METASTATIC RENAL CELL CARCINOMA
     Dosage: 50 MG, DAILY (FOR 4 WEEKS 2 WEEK BREAK)
     Route: 048
  2. ACIMAX [Concomitant]
     Dosage: 20 MG, 2X/DAY
  3. CADUET [Concomitant]
     Dosage: 5/40, 1X/NIGHT
  4. WARFARIN [Concomitant]
     Dosage: 4 MG, 1X/NIGHT
  5. DIAMICRON MR [Concomitant]
     Dosage: 1 DF, 1X/MORNING
  6. KARVEA [Concomitant]
     Dosage: 150 MG, 1X/MORNING
  7. LIPIDIL [Concomitant]
     Dosage: 145 MG, 1X/NIGHT
  8. MINIPRESS [Concomitant]
     Dosage: 5 MG, 2X/DAY
  9. NEURONTIN [Concomitant]
     Dosage: 400 MG, 2X/DAY
  10. NOTEN [Concomitant]
     Dosage: 25 MG, 1X/MORNING
  11. TRYZAN [Concomitant]
     Dosage: 10 MG, 1X/MORNING

REACTIONS (6)
  - Hypotension [Recovered/Resolved]
  - Pyrexia [Recovered/Resolved]
  - Renal failure acute [Recovered/Resolved]
  - Rash maculo-papular [Recovered/Resolved]
  - Purpura [Recovered/Resolved]
  - Hypersensitivity vasculitis [Recovered/Resolved]
